FAERS Safety Report 5379299-3 (Version None)
Quarter: 2007Q3

REPORT INFORMATION
  Report Type: 
  Country: None (occurrence: None)
  Receive Date: 20070705
  Receipt Date: 20070625
  Transmission Date: 20080115
  Serious: Yes (Hospitalization)
  Sender: FDA-Public Use
  Company Number: FR-PFIZER INC-2007052726

PATIENT
  Age: 85 Year
  Sex: Male
  Weight: 58 kg

DRUGS (5)
  1. ALDACTONE [Suspect]
     Indication: ESSENTIAL HYPERTENSION
     Route: 048
  2. RAMIPRIL [Suspect]
     Indication: ESSENTIAL HYPERTENSION
     Route: 048
  3. ASPIRIN [Concomitant]
     Dosage: DAILY DOSE:75MG
     Route: 048
  4. LASIX [Concomitant]
     Indication: CARDIAC FAILURE
     Route: 048
  5. LASIX [Concomitant]
     Dosage: DAILY DOSE:60MG
     Route: 048

REACTIONS (6)
  - ABDOMINAL PAIN UPPER [None]
  - ANOREXIA [None]
  - NAUSEA [None]
  - RENAL FAILURE ACUTE [None]
  - VOMITING [None]
  - WEIGHT DECREASED [None]
